FAERS Safety Report 15770278 (Version 1)
Quarter: 2018Q4

REPORT INFORMATION
  Report Type: Spontaneous
  Country: US (occurrence: US)
  Receive Date: 20181227
  Receipt Date: 20181227
  Transmission Date: 20190205
  Serious: Yes (Other)
  Sender: FDA-Public Use
  Company Number: None

PATIENT
  Age: 64 Year
  Sex: Male

DRUGS (22)
  1. HUMIRA [Suspect]
     Active Substance: ADALIMUMAB
     Indication: CROHN^S DISEASE
     Dosage: ?          OTHER FREQUENCY:Q2W;?
     Route: 058
     Dates: start: 20171209
  2. PREDNISONE/VITAMIN D3 [Concomitant]
  3. APAP/CODEINE [Concomitant]
     Active Substance: ACETAMINOPHEN\CODEINE PHOSPHATE
  4. METFORMIN/CLOBETASOL [Concomitant]
  5. VITAMIN D [Concomitant]
     Active Substance: CHOLECALCIFEROL
  6. METHOTREXATE. [Concomitant]
     Active Substance: METHOTREXATE
  7. NOVOLIN R [Concomitant]
     Active Substance: INSULIN HUMAN
  8. ATENOLOL. [Concomitant]
     Active Substance: ATENOLOL
  9. METOPROLOL TARTRATE. [Concomitant]
     Active Substance: METOPROLOL TARTRATE
  10. CIPROFLOXACIN. [Concomitant]
     Active Substance: CIPROFLOXACIN
  11. A-HYDROCORT [Concomitant]
     Active Substance: HYDROCORTISONE SODIUM SUCCINATE
  12. NITROGLYCERIN. [Concomitant]
     Active Substance: NITROGLYCERIN
  13. TRIAMCINOLON [Concomitant]
  14. DULERA [Concomitant]
     Active Substance: FORMOTEROL FUMARATE DIHYDRATE\MOMETASONE FUROATE
  15. TAMSULOSIN [Concomitant]
     Active Substance: TAMSULOSIN
  16. TRAMADOL. [Concomitant]
     Active Substance: TRAMADOL
  17. FOLIC ACID/TERBINAFINE [Concomitant]
  18. PROAIR HFA [Concomitant]
     Active Substance: ALBUTEROL SULFATE
  19. SPIRIVA [Concomitant]
     Active Substance: TIOTROPIUM BROMIDE MONOHYDRATE
  20. CLINDAMYCIN. [Concomitant]
     Active Substance: CLINDAMYCIN
  21. HYDROXYCHLOR [Concomitant]
     Active Substance: HYDROXYCHLOROQUINE
  22. DICLOXACILL [Concomitant]

REACTIONS (2)
  - Therapy cessation [None]
  - Neoplasm malignant [None]

NARRATIVE: CASE EVENT DATE: 20181203
